FAERS Safety Report 21355678 (Version 1)
Quarter: 2022Q3

REPORT INFORMATION
  Report Type: Spontaneous
  Country: US (occurrence: None)
  Receive Date: 20220919
  Receipt Date: 20220919
  Transmission Date: 20221027
  Serious: Yes (Hospitalization)
  Sender: FDA-Public Use
  Company Number: None

PATIENT
  Sex: Male

DRUGS (1)
  1. ASTAGRAF XL [Suspect]
     Active Substance: TACROLIMUS
     Indication: Renal transplant
     Dosage: TAKE 3 CAPSULES (1.5 MG TOTAL) BY MOUTH DAILY.?
     Route: 048
     Dates: start: 20191125

REACTIONS (2)
  - Parainfluenzae virus infection [None]
  - Oxygen saturation decreased [None]
